FAERS Safety Report 26127082 (Version 1)
Quarter: 2025Q4

REPORT INFORMATION
  Report Type: Spontaneous
  Country: GB (occurrence: GB)
  Receive Date: 20251205
  Receipt Date: 20251205
  Transmission Date: 20260119
  Serious: Yes (Other)
  Sender: EISAI
  Company Number: None

PATIENT
  Age: 85 Year
  Sex: Male
  Weight: 70 kg

DRUGS (2)
  1. DONEPEZIL [Suspect]
     Active Substance: DONEPEZIL
     Indication: Dementia
     Dosage: DOSE AND FREQUENCY UNKNOWN
     Route: 048
     Dates: start: 20230118, end: 202511
  2. DONEPEZIL [Suspect]
     Active Substance: DONEPEZIL
     Dosage: DOSE AND FREQUENCY UNKNOWN (DOSE REDUCED)
     Route: 048

REACTIONS (1)
  - Hypersexuality [Recovering/Resolving]

NARRATIVE: CASE EVENT DATE: 20251116
